FAERS Safety Report 7824228-3 (Version None)
Quarter: 2011Q4

REPORT INFORMATION
  Report Type: 
  Country: None (occurrence: None)
  Receive Date: 20111019
  Receipt Date: 20111012
  Transmission Date: 20120403
  Serious: Yes (Hospitalization, Other)
  Sender: FDA-Public Use
  Company Number: US-AMGEN-USASP2011052951

PATIENT
  Age: 58 Year
  Sex: Female

DRUGS (2)
  1. BARBITURATES [Concomitant]
  2. ENBREL [Suspect]
     Indication: RHEUMATOID ARTHRITIS
     Dosage: 25 MG, Q2WK
     Dates: start: 20030401

REACTIONS (13)
  - VAGINAL HAEMORRHAGE [None]
  - BONE PAIN [None]
  - PROCEDURAL COMPLICATION [None]
  - RHEUMATOID ARTHRITIS [None]
  - MENORRHAGIA [None]
  - MEMORY IMPAIRMENT [None]
  - CHEST PAIN [None]
  - DRUG INEFFECTIVE [None]
  - PRECANCEROUS CELLS PRESENT [None]
  - DYSPHONIA [None]
  - SINUS DISORDER [None]
  - SWELLING [None]
  - THERAPEUTIC RESPONSE DECREASED [None]
